FAERS Safety Report 5073022-8 (Version None)
Quarter: 2006Q3

REPORT INFORMATION
  Report Type: 
  Country: None (occurrence: None)
  Receive Date: 20060802
  Receipt Date: 20060721
  Transmission Date: 20061208
  Serious: Yes (Other)
  Sender: FDA-Public Use
  Company Number: 2006091779

PATIENT
  Age: 62 Year
  Sex: Male

DRUGS (9)
  1. METHYLPREDNISOLONE [Suspect]
     Indication: CHRONIC LYMPHOCYTIC LEUKAEMIA
     Dosage: INTRAVENOUS
     Route: 042
  2. CAMPATH [Suspect]
     Indication: CHRONIC LYMPHOCYTIC LEUKAEMIA
     Dosage: 30 MG (30 MG, 3 IN 1 WK) , INTRAVENOUS
     Route: 042
  3. ACYCLOVIR [Concomitant]
  4. ALLOPURINOL [Concomitant]
  5. CHLORPHENIRAMINE MALEATE [Concomitant]
  6. CIPROFLOXACIN [Concomitant]
  7. SULFAMETHOXAZOLE + TRIMETHOPRIM [Concomitant]
  8. LANSOPRAZOLE [Concomitant]
  9. ACETAMINOPHEN [Concomitant]

REACTIONS (5)
  - CHRONIC LYMPHOCYTIC LEUKAEMIA TRANSFORMATION [None]
  - HAEMOGLOBIN DECREASED [None]
  - LOWER RESPIRATORY TRACT INFECTION BACTERIAL [None]
  - NEUTROPENIA [None]
  - PLATELET COUNT DECREASED [None]
